FAERS Safety Report 21763037 (Version 1)
Quarter: 2022Q4

REPORT INFORMATION
  Report Type: Spontaneous
  Country: CN (occurrence: CN)
  Receive Date: 20221221
  Receipt Date: 20221221
  Transmission Date: 20230113
  Serious: Yes (Other)
  Sender: FDA-Public Use
  Company Number: CN-PFIZER INC-PV202200126542

PATIENT
  Age: 50 Year
  Sex: Female
  Weight: 60 kg

DRUGS (2)
  1. LINEZOLID [Suspect]
     Active Substance: LINEZOLID
     Indication: Intracranial infection
     Dosage: 0.6 G, 2X/DAY
     Route: 048
     Dates: start: 20221203, end: 20221207
  2. MEROPENEM [Concomitant]
     Active Substance: MEROPENEM
     Indication: Intracranial infection
     Dosage: 2 G, 3X/DAY
     Route: 041
     Dates: start: 20221203

REACTIONS (3)
  - Nausea [Not Recovered/Not Resolved]
  - Vomiting [Not Recovered/Not Resolved]
  - Abdominal discomfort [Not Recovered/Not Resolved]

NARRATIVE: CASE EVENT DATE: 20221203
